FAERS Safety Report 9202183 (Version 1)
Quarter: 2013Q2

REPORT INFORMATION
  Report Type: Report from Study
  Country: US (occurrence: US)
  Receive Date: 20130401
  Receipt Date: 20130401
  Transmission Date: 20140414
  Serious: Yes (Hospitalization, Other)
  Sender: FDA-Public Use
  Company Number: US-ASTRAZENECA-2013SE18980

PATIENT
  Age: 27309 Day
  Sex: Female
  Weight: 73.5 kg

DRUGS (9)
  1. ATACAND [Suspect]
     Indication: HYPERTENSION
     Route: 048
     Dates: start: 20090909
  2. CADUET [Suspect]
     Indication: HYPERTENSION
     Route: 048
     Dates: start: 20090909
  3. CADUET [Suspect]
     Indication: HYPERLIPIDAEMIA
     Route: 048
     Dates: start: 20090909
  4. CADUET [Suspect]
     Indication: HYPERTENSION
     Route: 048
     Dates: start: 20090909
  5. CADUET [Suspect]
     Indication: HYPERLIPIDAEMIA
     Route: 048
     Dates: start: 20090909
  6. ASPIRIN [Concomitant]
     Dates: start: 1995
  7. LEVOXYL [Concomitant]
     Dates: start: 20090915
  8. CARVEDIOL [Concomitant]
     Dates: start: 20081021
  9. LORAZEPAM [Concomitant]
     Dates: start: 2003

REACTIONS (1)
  - Abdominal pain [Recovered/Resolved]
